FAERS Safety Report 19093723 (Version 1)
Quarter: 2021Q2

REPORT INFORMATION
  Report Type: Spontaneous
  Country: CA (occurrence: CA)
  Receive Date: 20210405
  Receipt Date: 20210405
  Transmission Date: 20210717
  Serious: Yes (Other)
  Sender: FDA-Public Use
  Company Number: CA-TEVA-2021-CA-1897275

PATIENT
  Age: 53 Year
  Sex: Male

DRUGS (2)
  1. OXALIPLATIN INJECTION SINGLE USE VIALS [Suspect]
     Active Substance: OXALIPLATIN
     Indication: COLORECTAL CANCER
     Dosage: SOLUTION  INTRAVENOUS
     Route: 042
  2. XELOX [Concomitant]
     Active Substance: CAPECITABINE\OXALIPLATIN
     Route: 065

REACTIONS (3)
  - Chest discomfort [Recovered/Resolved]
  - Tongue oedema [Recovered/Resolved]
  - Vision blurred [Recovered/Resolved]
